FAERS Safety Report 13763484 (Version 1)
Quarter: 2017Q3

REPORT INFORMATION
  Report Type: Spontaneous
  Country: IT (occurrence: IT)
  Receive Date: 20170718
  Receipt Date: 20170718
  Transmission Date: 20171127
  Serious: Yes (Other)
  Sender: FDA-Public Use
  Company Number: IT-PFIZER INC-2017302018

PATIENT
  Age: 65 Year
  Sex: Female

DRUGS (2)
  1. AZITHROMYCIN ANHYDROUS. [Suspect]
     Active Substance: AZITHROMYCIN ANHYDROUS
     Indication: CAT SCRATCH DISEASE
     Dosage: 500 MG, DAILY
     Route: 048
  2. L-THYROXINE /00068001/ [Concomitant]
     Active Substance: LEVOTHYROXINE
     Indication: THYROIDITIS CHRONIC
     Dosage: 75 UG, UNK

REACTIONS (2)
  - Acute kidney injury [Recovered/Resolved]
  - IgA nephropathy [Recovered/Resolved]
